FAERS Safety Report 23515505 (Version 1)
Quarter: 2024Q1

REPORT INFORMATION
  Report Type: Spontaneous
  Country: US (occurrence: US)
  Receive Date: 20240213
  Receipt Date: 20240213
  Transmission Date: 20240410
  Serious: Yes (Death)
  Sender: FDA-Public Use
  Company Number: US-NOVOPROD-1171599

PATIENT
  Age: 23 Year
  Sex: Male

DRUGS (1)
  1. WEGOVY [Suspect]
     Active Substance: SEMAGLUTIDE
     Indication: Obesity
     Dosage: 2.4 MG
     Route: 058

REACTIONS (4)
  - Dyspnoea [Fatal]
  - Nausea [Fatal]
  - Vomiting [Fatal]
  - Heart rate increased [Fatal]
